FAERS Safety Report 6951777-2 (Version None)
Quarter: 2010Q3

REPORT INFORMATION
  Report Type: 
  Country: None (occurrence: None)
  Receive Date: 20100829
  Receipt Date: 20100413
  Transmission Date: 20110219
  Serious: No
  Sender: FDA-Public Use
  Company Number: US-ABBOTT-10P-163-0638454-00

PATIENT
  Sex: Male
  Weight: 82.628 kg

DRUGS (6)
  1. NIASPAN [Suspect]
     Indication: DYSLIPIDAEMIA
     Dosage: NIGHTLY
     Route: 048
     Dates: start: 20100412
  2. ADVAIR DISKUS 100/50 [Concomitant]
     Indication: ALLERGY TO ANIMAL
     Dosage: 1-2 TIMES PER DAY
  3. ADVAIR DISKUS 100/50 [Concomitant]
  4. POSSIBLY ALBUTEROL [Concomitant]
     Indication: ALLERGY TO ANIMAL
  5. POSSIBLY ALBUTEROL [Concomitant]
  6. ASPIRIN [Concomitant]
     Indication: PRODUCT USED FOR UNKNOWN INDICATION
     Route: 048

REACTIONS (1)
  - INSOMNIA [None]
